FAERS Safety Report 7224514-4 (Version None)
Quarter: 2011Q1

REPORT INFORMATION
  Report Type: 
  Country: None (occurrence: None)
  Receive Date: 20110113
  Receipt Date: 20110111
  Transmission Date: 20110831
  Serious: No
  Sender: FDA-Public Use
  Company Number: US-PFIZER INC-2011007628

PATIENT
  Sex: Female
  Weight: 77.098 kg

DRUGS (16)
  1. CHANTIX [Suspect]
     Indication: SMOKING CESSATION THERAPY
     Dosage: 0.5 MG, 1X/DAY
     Route: 048
     Dates: start: 20101101
  2. PROPAFENONE [Concomitant]
     Indication: CARDIAC DISORDER
     Dosage: 225 MG, 3X/DAY
     Route: 048
  3. WARFARIN SODIUM [Concomitant]
     Indication: ANTICOAGULANT THERAPY
     Dosage: 6 MG, 1X/DAY
     Route: 048
  4. SKELAXIN [Concomitant]
     Indication: BACK PAIN
     Dosage: UNK
     Route: 048
  5. PROPOXYPHENE HCL AND ACETAMINOPHEN [Concomitant]
     Indication: BACK PAIN
     Dosage: 650 MG, UNK
     Route: 048
  6. CITALOPRAM [Concomitant]
     Indication: DEPRESSION
     Dosage: 20 MG, 1X/DAY
     Route: 048
  7. CHANTIX [Suspect]
     Dosage: 1 MG, UNK
     Route: 048
     Dates: end: 20101211
  8. SYMBICORT [Concomitant]
     Indication: CHRONIC OBSTRUCTIVE PULMONARY DISEASE
     Dosage: 160 MCG/4.5 MCG, BID
     Route: 055
  9. ATENOLOL [Concomitant]
     Indication: CARDIAC DISORDER
     Dosage: 25 MG, 1X/DAY
     Route: 048
  10. NEXIUM [Concomitant]
     Indication: GASTRIC DISORDER
     Dosage: 40 MG, 1X/DAY
     Route: 048
  11. XOPENEX HFA [Concomitant]
     Indication: LUNG DISORDER
     Dosage: 45 UG, 4X/DAY
     Route: 055
  12. PRAVASTATIN [Concomitant]
     Indication: BLOOD CHOLESTEROL ABNORMAL
     Dosage: 40 MG, 1X/DAY
     Route: 048
  13. BENADRYL [Concomitant]
     Indication: HYPERSENSITIVITY
     Dosage: 4 TABLETS DAILY
     Route: 048
  14. TEMAZEPAM [Concomitant]
     Indication: SLEEP DISORDER
     Dosage: 30 MG, EVERY FOUR DAYS
     Route: 048
  15. ANTIVERT [Concomitant]
     Dosage: UNK
     Route: 048
  16. PROPOXYPHENE HCL AND ACETAMINOPHEN [Concomitant]
     Indication: MUSCLE RELAXANT THERAPY

REACTIONS (4)
  - FEELING ABNORMAL [None]
  - SENSATION OF HEAVINESS [None]
  - LETHARGY [None]
  - DIZZINESS [None]
